FAERS Safety Report 6820711-8 (Version None)
Quarter: 2010Q3

REPORT INFORMATION
  Report Type: 
  Country: None (occurrence: None)
  Receive Date: 20100707
  Receipt Date: 20100623
  Transmission Date: 20110219
  Serious: Yes (Other)
  Sender: FDA-Public Use
  Company Number: US-ELI_LILLY_AND_COMPANY-US201006006519

PATIENT
  Age: 59 Year
  Sex: Female

DRUGS (4)
  1. CYMBALTA [Suspect]
     Indication: DEPRESSION
  2. PROZAC [Suspect]
     Indication: DEPRESSION
     Dosage: 20 MG, UNK
  3. PROZAC [Suspect]
     Dosage: 40 MG, UNK
  4. PROZAC [Suspect]
     Dosage: 60 MG, UNK

REACTIONS (9)
  - AMNESIA [None]
  - BLOOD GLUCOSE INCREASED [None]
  - DIABETES MELLITUS [None]
  - DRUG INEFFECTIVE [None]
  - FALL [None]
  - FEELING ABNORMAL [None]
  - LOWER LIMB FRACTURE [None]
  - SHOCK HYPOGLYCAEMIC [None]
  - UPPER LIMB FRACTURE [None]
